FAERS Safety Report 5353644-7 (Version None)
Quarter: 2007Q2

REPORT INFORMATION
  Report Type: 
  Country: None (occurrence: None)
  Receive Date: 20070612
  Receipt Date: 20070531
  Transmission Date: 20071010
  Serious: Yes (Other)
  Sender: FDA-Public Use
  Company Number: US-ROCHE-500217

PATIENT
  Age: 58 Year
  Sex: Female

DRUGS (2)
  1. PEGASYS [Suspect]
     Route: 065
     Dates: start: 20051204, end: 20070401
  2. COPEGUS [Suspect]
     Route: 065
     Dates: start: 20051204, end: 20070401

REACTIONS (3)
  - ABDOMINAL DISTENSION [None]
  - ASTHENIA [None]
  - HYPERAMMONAEMIA [None]
